FAERS Safety Report 9470543 (Version 2)
Quarter: 2013Q3

REPORT INFORMATION
  Report Type: Spontaneous
  Country: CA (occurrence: None)
  Receive Date: 20130815
  Receipt Date: 20130821
  Transmission Date: 20140515
  Serious: Yes (Other)
  Sender: FDA-Public Use
  Company Number: COL_14182_2013

PATIENT
  Sex: Male

DRUGS (4)
  1. COLGATE TOTAL CLEAN MINT [Suspect]
     Indication: DENTAL CARIES
     Dosage: FILLED HEAD OF BRASH
     Route: 048
     Dates: start: 2011, end: 201308
  2. COLGATE TOTAL CLEAN MINT [Suspect]
     Indication: DENTAL PLAQUE
     Dosage: FILLED HEAD OF BRASH
     Route: 048
     Dates: start: 2011, end: 201308
  3. COLGATE TOTAL CLEAN MINT [Suspect]
     Indication: GINGIVITIS
     Dosage: FILLED HEAD OF BRASH
     Route: 048
     Dates: start: 2011, end: 201308
  4. SODIUM LAURYL SULFATE [Suspect]
     Indication: PRODUCT USED FOR UNKNOWN INDICATION
     Dates: start: 2011

REACTIONS (5)
  - Renal neoplasm [None]
  - Weight decreased [None]
  - Rectal discharge [None]
  - Product formulation issue [None]
  - Weight gain poor [None]
